FAERS Safety Report 7772226-0 (Version None)
Quarter: 2011Q3

REPORT INFORMATION
  Report Type: 
  Country: None (occurrence: None)
  Receive Date: 20110922
  Receipt Date: 20100412
  Transmission Date: 20111222
  Serious: Yes (Hospitalization)
  Sender: FDA-Public Use
  Company Number: US-ASTRAZENECA-2008UW07392

PATIENT
  Age: 17725 Day

DRUGS (13)
  1. SEROQUEL [Suspect]
     Route: 048
     Dates: start: 20060809
  2. LACTULOSE [Concomitant]
  3. QUININE SULF [Concomitant]
     Dates: start: 20061018
  4. TACROLIMUS [Concomitant]
     Dates: start: 20070127
  5. XIFAXAN [Concomitant]
     Dates: start: 20060728
  6. METOPROLOL [Concomitant]
     Dates: start: 20070127
  7. SPIRONOLACT [Concomitant]
     Dates: start: 20061024
  8. LASIX [Concomitant]
     Dates: start: 20061024
  9. COLACE [Concomitant]
     Dates: start: 20070127
  10. OMEPRAZOLE/PRILOSEC [Concomitant]
     Dates: start: 20060803
  11. ESOMEPRAZOLE SODIUM [Concomitant]
     Dates: start: 20070127
  12. OXYCODONE HCL [Concomitant]
     Indication: PAIN
     Dates: start: 20070127
  13. PREDNISONE [Concomitant]
     Dates: start: 20070127

REACTIONS (2)
  - HYPERGLYCAEMIA [None]
  - DIABETES MELLITUS [None]
